FAERS Safety Report 13593102 (Version 1)
Quarter: 2017Q2

REPORT INFORMATION
  Report Type: Spontaneous
  Country: DE (occurrence: DE)
  Receive Date: 20170530
  Receipt Date: 20170530
  Transmission Date: 20170830
  Serious: Yes (Other)
  Sender: FDA-Public Use
  Company Number: DE-BRISTOL-MYERS SQUIBB COMPANY-BMS-2017-047017

PATIENT
  Age: 9 Decade
  Sex: Female

DRUGS (4)
  1. DIGITOXIN [Concomitant]
     Active Substance: DIGITOXIN
     Indication: HYPERTENSION
     Dosage: UNK
     Route: 065
  2. METFORMIN HYDROCHLORIDE. [Suspect]
     Active Substance: METFORMIN HYDROCHLORIDE
     Indication: TYPE 2 DIABETES MELLITUS
     Dosage: UNK
     Route: 065
  3. NOVAMINSULFON [Concomitant]
     Active Substance: METAMIZOLE
     Indication: PRODUCT USED FOR UNKNOWN INDICATION
     Dosage: UNK
     Route: 065
  4. CONCOR COR [Suspect]
     Active Substance: BISOPROLOL FUMARATE
     Indication: HYPERTENSION
     Dosage: 1 DF, BID
     Route: 065

REACTIONS (9)
  - Hypoaesthesia [Unknown]
  - Asthenia [Unknown]
  - Depression [Unknown]
  - Arrhythmia [Unknown]
  - Burning sensation [Unknown]
  - Gastrointestinal disorder [Unknown]
  - Hyperhidrosis [Unknown]
  - Sleep disorder [Unknown]
  - Rhinitis [Unknown]
